FAERS Safety Report 21374785 (Version 2)
Quarter: 2022Q4

REPORT INFORMATION
  Report Type: Spontaneous
  Country: US (occurrence: US)
  Receive Date: 20220926
  Receipt Date: 20221004
  Transmission Date: 20230113
  Serious: Yes (Hospitalization, Other)
  Sender: FDA-Public Use
  Company Number: US-CIPLA LTD.-2022US05606

PATIENT
  Age: 15 Year
  Sex: Female

DRUGS (1)
  1. WARFARIN [Suspect]
     Active Substance: WARFARIN
     Dosage: 100-200 MG, UNK
     Route: 048

REACTIONS (7)
  - Intentional self-injury [Unknown]
  - Intentional overdose [Unknown]
  - Coagulopathy [Unknown]
  - Anticoagulation drug level above therapeutic [Recovering/Resolving]
  - Abdominal pain [Unknown]
  - Diarrhoea [Unknown]
  - Intestinal haematoma [Recovering/Resolving]
